FAERS Safety Report 9905504 (Version 1)
Quarter: 2014Q1

REPORT INFORMATION
  Report Type: Spontaneous
  Country: US (occurrence: US)
  Receive Date: 20140218
  Receipt Date: 20140218
  Transmission Date: 20141002
  Serious: Yes (Other)
  Sender: FDA-Public Use
  Company Number: US-GLAXOSMITHKLINE-A1060498A

PATIENT
  Age: 56 Year
  Sex: Female

DRUGS (13)
  1. LAMICTAL [Suspect]
     Indication: CONVULSION
     Dosage: 300MG PER DAY
     Route: 048
  2. LAMOTRIGINE [Suspect]
     Indication: CONVULSION
     Route: 065
     Dates: start: 201301
  3. CYMBALTA [Concomitant]
  4. ALPRAZOLAM [Concomitant]
  5. TRAMADOL [Concomitant]
  6. SPIRIVA [Concomitant]
  7. SYMBICORT [Concomitant]
  8. SINGULAIR [Concomitant]
  9. NIFEDIPINE [Concomitant]
  10. METOPROLOL [Concomitant]
  11. METFORMIN [Concomitant]
  12. LISINOPRIL [Concomitant]
  13. VENTOLIN [Concomitant]

REACTIONS (5)
  - Gastric disorder [Not Recovered/Not Resolved]
  - Headache [Not Recovered/Not Resolved]
  - Diarrhoea [Not Recovered/Not Resolved]
  - Convulsion [Unknown]
  - Drug administration error [Not Recovered/Not Resolved]
